FAERS Safety Report 22319220 (Version 1)
Quarter: 2023Q2

REPORT INFORMATION
  Report Type: Spontaneous
  Country: US (occurrence: US)
  Receive Date: 20230515
  Receipt Date: 20230515
  Transmission Date: 20230721
  Serious: Yes (Hospitalization, Other)
  Sender: FDA-Public Use
  Company Number: US-drreddys-LIT/USA/23/0164916

PATIENT
  Age: 68 Year
  Sex: Male

DRUGS (3)
  1. BENDAMUSTINE HYDROCHLORIDE [Suspect]
     Active Substance: BENDAMUSTINE HYDROCHLORIDE
     Indication: Waldenstrom^s macroglobulinaemia
     Dosage: 90 MG/M2 ON DAYS 1 AND 2 OF EACH CYCLE, CYCLE REPEATED EVERY 4 WEEKS.
  2. ALLOPURINOL [Suspect]
     Active Substance: ALLOPURINOL
     Indication: Tumour lysis syndrome
  3. RITUXIMAB [Suspect]
     Active Substance: RITUXIMAB
     Indication: Waldenstrom^s macroglobulinaemia
     Dosage: RITUXIMAB 375 MG/M2 ON DAY 1 OF EACH CYCLE, CYCLE REPEATED EVERY 4 WEEKS.

REACTIONS (7)
  - Cryoglobulinaemia [Recovering/Resolving]
  - Acute kidney injury [Unknown]
  - Atrial fibrillation [Unknown]
  - Sepsis [Unknown]
  - Drug reaction with eosinophilia and systemic symptoms [Recovering/Resolving]
  - Tumour lysis syndrome [Unknown]
  - Product use in unapproved indication [Unknown]
